FAERS Safety Report 6294327-9 (Version None)
Quarter: 2009Q3

REPORT INFORMATION
  Report Type: 
  Country: None (occurrence: None)
  Receive Date: 20090803
  Receipt Date: 20090721
  Transmission Date: 20100115
  Serious: Yes (Other)
  Sender: FDA-Public Use
  Company Number: US-PFIZER INC-2009215326

PATIENT
  Sex: Male
  Weight: 67 kg

DRUGS (4)
  1. LIPITOR [Suspect]
     Indication: BLOOD CHOLESTEROL INCREASED
     Route: 048
     Dates: end: 20090515
  2. COZAAR [Concomitant]
     Dosage: 100 MG, UNK
     Route: 048
  3. AMLODIPINE BESILATE [Concomitant]
     Dosage: 5 MG, UNK
     Route: 048
  4. ACETYLSALICYLIC ACID [Concomitant]
     Dosage: 81 MG, 1X/DAY
     Route: 048

REACTIONS (5)
  - BODY HEIGHT DECREASED [None]
  - GAIT DISTURBANCE [None]
  - MOTOR NEURONE DISEASE [None]
  - MUSCULAR WEAKNESS [None]
  - WEIGHT DECREASED [None]
